FAERS Safety Report 10184036 (Version 1)
Quarter: 2014Q2

REPORT INFORMATION
  Report Type: Spontaneous
  Country: FR (occurrence: FR)
  Receive Date: 20140520
  Receipt Date: 20140520
  Transmission Date: 20141212
  Serious: Yes (Hospitalization, Other)
  Sender: FDA-Public Use
  Company Number: FR-ELI_LILLY_AND_COMPANY-FR201405002657

PATIENT
  Age: 48 Year
  Sex: Male

DRUGS (7)
  1. HUMALOG 25% LISPRO, 75% NPL [Suspect]
     Indication: TYPE 1 DIABETES MELLITUS
     Dosage: 7 U, UNKNOWN
     Route: 058
  2. HUMALOG 25% LISPRO, 75% NPL [Suspect]
     Dosage: 21 U, SINGLE
     Route: 058
     Dates: start: 20140413, end: 20140413
  3. ALCOHOL [Concomitant]
     Route: 065
  4. TRIATEC                            /00885601/ [Concomitant]
     Dosage: 10 MG, UNKNOWN
  5. PARIET [Concomitant]
     Dosage: 10 MG, UNK
  6. LEVEMIR [Concomitant]
     Route: 065
  7. KARDEGIC [Concomitant]
     Dosage: 75 MG, UNKNOWN

REACTIONS (3)
  - Suicide attempt [Recovered/Resolved]
  - Hypoglycaemia [Recovered/Resolved]
  - Intentional overdose [Recovered/Resolved]
